FAERS Safety Report 16926425 (Version 1)
Quarter: 2019Q4

REPORT INFORMATION
  Report Type: Spontaneous
  Country: US (occurrence: US)
  Receive Date: 20191016
  Receipt Date: 20191016
  Transmission Date: 20200122
  Serious: Yes (Other)
  Sender: FDA-Public Use
  Company Number: NVSC2019US002279

PATIENT
  Age: 60 Year
  Sex: Male

DRUGS (1)
  1. AMOXICILLIN. [Suspect]
     Active Substance: AMOXICILLIN
     Indication: DENTAL DISORDER PROPHYLAXIS
     Dosage: UNK
     Route: 065

REACTIONS (7)
  - Mental status changes [Recovering/Resolving]
  - Photophobia [Recovering/Resolving]
  - Headache [Recovering/Resolving]
  - Meningitis aseptic [Recovering/Resolving]
  - Neck pain [Recovering/Resolving]
  - Agitation [Recovering/Resolving]
  - Pyrexia [Recovering/Resolving]
